FAERS Safety Report 15183125 (Version 1)
Quarter: 2018Q4

REPORT INFORMATION
  Report Type: Spontaneous
  Country: US (occurrence: US)
  Receive Date: 20180723
  Receipt Date: 20180723
  Transmission Date: 20190204
  Serious: No
  Sender: FDA-Public Use
  Company Number: US-AYTU BIOSCIENCES, INC.-2017AYT000133

PATIENT

DRUGS (2)
  1. NATESTO [Suspect]
     Active Substance: TESTOSTERONE
     Dosage: 2 PUMPS ONE PER NOSTRIL, TID
     Route: 045
     Dates: start: 20171120
  2. NATESTO [Suspect]
     Active Substance: TESTOSTERONE
     Indication: BLOOD TESTOSTERONE DECREASED
     Dosage: 11 MG, UNK
     Route: 045
     Dates: start: 2015

REACTIONS (2)
  - Product quality issue [Unknown]
  - Drug ineffective [Unknown]

NARRATIVE: CASE EVENT DATE: 201711
